FAERS Safety Report 5259738-9 (Version None)
Quarter: 2007Q1

REPORT INFORMATION
  Report Type: 
  Country: None (occurrence: None)
  Receive Date: 20061117
  Receipt Date: 20060222
  Transmission Date: 20070707
  Serious: Yes (Other)
  Sender: FDA-Public Use
  Company Number: US-JNJFOC-20060205290

PATIENT
  Age: 60 Year
  Sex: Female

DRUGS (1)
  1. LEVAQUIN [Suspect]
     Indication: CELLULITIS
     Dosage: ORAL
     Route: 048
     Dates: start: 20041201, end: 20041201

REACTIONS (3)
  - ARTHROPATHY [None]
  - ASTHENIA [None]
  - TENDONITIS [None]
